FAERS Safety Report 13754343 (Version 2)
Quarter: 2018Q2

REPORT INFORMATION
  Report Type: Spontaneous
  Country: US (occurrence: US)
  Receive Date: 20170714
  Receipt Date: 20180608
  Transmission Date: 20180711
  Serious: Yes (Hospitalization)
  Sender: FDA-Public Use
  Company Number: US-LPDUSPRD-20170974

PATIENT
  Age: 57 Year
  Sex: Male

DRUGS (1)
  1. ADENOSINE INJECTION, USP (6404-10) [Suspect]
     Active Substance: ADENOSINE
     Dosage: 18 MG
     Route: 065

REACTIONS (2)
  - Hypotension [Recovered/Resolved]
  - Anaphylactic reaction [Recovered/Resolved]
